FAERS Safety Report 5141041-9 (Version None)
Quarter: 2006Q4

REPORT INFORMATION
  Report Type: 
  Country: None (occurrence: None)
  Receive Date: 20061026
  Receipt Date: 20061018
  Transmission Date: 20070319
  Serious: Yes (Life-Threatening)
  Sender: FDA-Public Use
  Company Number: 430001E06NLD

PATIENT
  Age: 73 Year
  Sex: Male

DRUGS (4)
  1. NOVANTRONE [Suspect]
     Dosage: 14 MG
     Dates: start: 20050818, end: 20050822
  2. CYTARABINE [Suspect]
     Dosage: 200 MG
     Dates: start: 20050818, end: 20050824
  3. ETOPOSIDE [Suspect]
     Dosage: 200 MG
     Dates: start: 20050818, end: 20050820
  4. CEFTAZIDIME [Concomitant]

REACTIONS (2)
  - ASPERGILLOSIS [None]
  - KLEBSIELLA SEPSIS [None]
